FAERS Safety Report 4359647-3 (Version None)
Quarter: 2004Q2

REPORT INFORMATION
  Report Type: 
  Country: None (occurrence: None)
  Receive Date: 20040513
  Receipt Date: 20040430
  Transmission Date: 20050107
  Serious: Yes (Hospitalization, Other)
  Sender: FDA-Public Use
  Company Number: LT-SHR-04-025068

PATIENT
  Age: 77 Year
  Sex: Male

DRUGS (3)
  1. CAMPATH 30 MG/D VS. CHLORAMBUCIL (CODE NOT BROKEN) AMPULE [Suspect]
     Indication: CHRONIC LYMPHOCYTIC LEUKAEMIA
     Dosage: 30MG, 3X PER WEEK, INTRAVENOUS
     Route: 042
     Dates: start: 20040315, end: 20040414
  2. ACYCLOVIR [Concomitant]
  3. CO-TRIMOXAZOL [Concomitant]

REACTIONS (6)
  - CEREBRAL ISCHAEMIA [None]
  - CYTOMEGALOVIRUS INFECTION [None]
  - NAUSEA [None]
  - VERTIGO [None]
  - VESTIBULAR DISORDER [None]
  - VOMITING [None]
